FAERS Safety Report 5750078-8 (Version None)
Quarter: 2008Q2

REPORT INFORMATION
  Report Type: 
  Country: None (occurrence: None)
  Receive Date: 20080527
  Receipt Date: 20080515
  Transmission Date: 20081010
  Serious: Yes (Hospitalization)
  Sender: FDA-Public Use
  Company Number: TR-PFIZER INC-2008038047

PATIENT
  Sex: Male
  Weight: 77 kg

DRUGS (2)
  1. SU-011,248 [Suspect]
     Indication: GASTROINTESTINAL STROMAL TUMOUR
     Route: 048
     Dates: start: 20070326, end: 20080403
  2. SU-011,248 [Suspect]
     Route: 048
     Dates: start: 20080429, end: 20080514

REACTIONS (1)
  - LIVER ABSCESS [None]
